FAERS Safety Report 14645442 (Version 4)
Quarter: 2021Q2

REPORT INFORMATION
  Report Type: Spontaneous
  Country: FR (occurrence: FR)
  Receive Date: 20180316
  Receipt Date: 20210616
  Transmission Date: 20210716
  Serious: Yes (Hospitalization, Congenital Anomaly, Other)
  Sender: FDA-Public Use
  Company Number: FR-ABBVIE-18P-056-2284855-00

PATIENT
  Sex: Male

DRUGS (3)
  1. DEPAKINE [Suspect]
     Active Substance: VALPROATE SODIUM
     Indication: MATERNAL EXPOSURE TIMING UNSPECIFIED
     Route: 064
  2. FOLIC ACID. [Concomitant]
     Active Substance: FOLIC ACID
     Indication: PRODUCT USED FOR UNKNOWN INDICATION
     Route: 065
  3. DEPAKINE [Suspect]
     Active Substance: VALPROATE SODIUM
     Route: 063

REACTIONS (24)
  - Echolalia [Unknown]
  - Bronchiolitis [Unknown]
  - Conjunctivitis [Unknown]
  - Learning disorder [Unknown]
  - Unevaluable event [Recovered/Resolved]
  - Phimosis [Unknown]
  - Autism spectrum disorder [Unknown]
  - Exposure via breast milk [Unknown]
  - Psychomotor retardation [Unknown]
  - Aggression [Unknown]
  - Oppositional defiant disorder [Unknown]
  - Nasopharyngitis [Unknown]
  - Speech disorder developmental [Unknown]
  - Bronchitis [Unknown]
  - Behaviour disorder [Unknown]
  - Dyslexia [Unknown]
  - Disturbance in attention [Unknown]
  - Ear infection [Unknown]
  - Agitation [Unknown]
  - Foetal exposure during pregnancy [Unknown]
  - Inflammation [Unknown]
  - Tonsillitis [Unknown]
  - Fall [Unknown]
  - Disorientation [Unknown]
